FAERS Safety Report 5150815-X (Version None)
Quarter: 2006Q4

REPORT INFORMATION
  Report Type: 
  Country: None (occurrence: None)
  Receive Date: 20061108
  Receipt Date: 20061025
  Transmission Date: 20070319
  Serious: Yes (Hospitalization)
  Sender: FDA-Public Use
  Company Number: 2006PV000029

PATIENT
  Age: 28 Year
  Sex: Male
  Weight: 44 kg

DRUGS (2)
  1. CYTARABINE [Suspect]
     Indication: CONDITION AGGRAVATED
     Dosage: 50 MG; QOW; INTH
     Route: 037
     Dates: start: 20060921, end: 20061005
  2. CYTARABINE [Suspect]
     Indication: NERVOUS SYSTEM DISORDER
     Dosage: 50 MG; QOW; INTH
     Route: 037
     Dates: start: 20060921, end: 20061005

REACTIONS (7)
  - DISEASE PROGRESSION [None]
  - DYSPNOEA [None]
  - FACIAL PALSY [None]
  - GENERAL PHYSICAL HEALTH DETERIORATION [None]
  - NERVOUS SYSTEM DISORDER [None]
  - PAIN [None]
  - RALES [None]
